FAERS Safety Report 20875869 (Version 6)
Quarter: 2022Q3

REPORT INFORMATION
  Report Type: Other
  Country: CA (occurrence: None)
  Receive Date: 20220526
  Receipt Date: 20220818
  Transmission Date: 20221027
  Serious: Yes (Hospitalization)
  Sender: FDA-Public Use
  Company Number: CA-ROCHE-3098382

PATIENT
  Age: 52 Year
  Sex: Female

DRUGS (6)
  1. OCREVUS [Suspect]
     Active Substance: OCRELIZUMAB
     Indication: Primary progressive multiple sclerosis
     Dosage: INITIALLY 300MG AT DAY 0 AND 14 THEN 600MG EVERY 6 MONTHS
     Route: 042
     Dates: start: 20200407
  2. OCREVUS [Suspect]
     Active Substance: OCRELIZUMAB
     Route: 042
  3. BACLOFEN [Concomitant]
     Active Substance: BACLOFEN
  4. MYRBETRIQ [Concomitant]
     Active Substance: MIRABEGRON
  5. GABAPENTIN [Concomitant]
     Active Substance: GABAPENTIN
  6. COVID-19 VACCINE NOS [Concomitant]
     Active Substance: COVID-19 VACCINE NOS

REACTIONS (2)
  - COVID-19 [Recovering/Resolving]
  - Memory impairment [Not Recovered/Not Resolved]

NARRATIVE: CASE EVENT DATE: 20220511
